FAERS Safety Report 6549646-5 (Version None)
Quarter: 2010Q1

REPORT INFORMATION
  Report Type: 
  Country: None (occurrence: None)
  Receive Date: 20100119
  Receipt Date: 20100113
  Transmission Date: 20100710
  Serious: Yes (Other)
  Sender: FDA-Public Use
  Company Number: 2009SP029013

PATIENT
  Age: 47 Year
  Sex: Female

DRUGS (6)
  1. REFLEX (MIRTAZAPINE) [Suspect]
     Indication: DEPRESSION
     Dosage: 15 MG;QD;PO
     Route: 048
     Dates: start: 20090925, end: 20091020
  2. AMOXAPINE [Concomitant]
  3. TRAZODONE HYDROCHLORIDE [Concomitant]
  4. SULPRIDE [Concomitant]
  5. FUROSEMIDE [Concomitant]
  6. LORAZEPAM [Concomitant]

REACTIONS (6)
  - ANTINUCLEAR ANTIBODY POSITIVE [None]
  - ARTHRALGIA [None]
  - GENERALISED OEDEMA [None]
  - MUSCULOSKELETAL STIFFNESS [None]
  - URINE OUTPUT DECREASED [None]
  - VIRAL INFECTION [None]
